FAERS Safety Report 7305199-5 (Version None)
Quarter: 2011Q1

REPORT INFORMATION
  Report Type: 
  Country: None (occurrence: None)
  Receive Date: 20110222
  Receipt Date: 20110217
  Transmission Date: 20110831
  Serious: Yes (Other)
  Sender: FDA-Public Use
  Company Number: US-PFIZER INC-2010026091

PATIENT
  Sex: Male

DRUGS (3)
  1. SUTENT [Suspect]
     Indication: METASTATIC RENAL CELL CARCINOMA
     Dosage: 25 MG (2 CAPS DAILY), 1X/DAY
     Route: 048
     Dates: start: 20081001
  2. SUTENT [Suspect]
     Dosage: 37.5 MG, DAILY FOR 28 DAYS
     Dates: start: 20090114
  3. SUTENT [Suspect]
     Dosage: 25 MG, DAILY FOR 28 DAYS
     Dates: start: 20100413, end: 20110118

REACTIONS (9)
  - PALMAR-PLANTAR ERYTHRODYSAESTHESIA SYNDROME [None]
  - MUSCLE SPASMS [None]
  - FLUID RETENTION [None]
  - PARAESTHESIA [None]
  - DYSPNOEA [None]
  - BLOOD PRESSURE INCREASED [None]
  - EPISTAXIS [None]
  - RENAL PAIN [None]
  - JOINT SWELLING [None]
